FAERS Safety Report 18105031 (Version 7)
Quarter: 2020Q4

REPORT INFORMATION
  Report Type: Spontaneous
  Country: CA (occurrence: CA)
  Receive Date: 20200804
  Receipt Date: 20201106
  Transmission Date: 20210113
  Serious: Yes (Hospitalization, Other)
  Sender: FDA-Public Use
  Company Number: CA-CELLTRION INC.-2020CA024828

PATIENT

DRUGS (9)
  1. CEMIPLIMAB [Concomitant]
     Active Substance: CEMIPLIMAB
     Dosage: UNK
     Dates: start: 201908
  2. INFLECTRA [Suspect]
     Active Substance: INFLIXIMAB-DYYB
     Indication: COLITIS ULCERATIVE
     Dosage: 700 MG AT 2, 6 WEEKS THEN EVERY 8 WEEKS
     Route: 042
     Dates: start: 20200722
  3. INFLECTRA [Suspect]
     Active Substance: INFLIXIMAB-DYYB
     Dosage: 700 MG AT 2, 6 WEEKS THEN EVERY 8 WEEKS
     Route: 042
     Dates: start: 20201028
  4. SALOFALK [MESALAZINE] [Concomitant]
     Active Substance: MESALAMINE
     Dosage: UNK
     Route: 065
  5. INFLECTRA [Suspect]
     Active Substance: INFLIXIMAB-DYYB
     Dosage: 700 MG AT 2, 6 WEEKS THEN EVERY 8 WEEKS
     Route: 042
     Dates: start: 20200902
  6. INFLECTRA [Suspect]
     Active Substance: INFLIXIMAB-DYYB
     Dosage: 700 MG AT 2, 6 WEEKS THEN EVERY 8 WEEKS
     Route: 042
     Dates: start: 20200805
  7. PREDNISONE. [Concomitant]
     Active Substance: PREDNISONE
     Dosage: UNK
     Route: 065
  8. INFLECTRA [Suspect]
     Active Substance: INFLIXIMAB-DYYB
     Dosage: 700 MG AT 2, 6 WEEKS THEN EVERY 8 WEEKS
     Route: 042
     Dates: start: 20200902
  9. ASACOL [Concomitant]
     Active Substance: MESALAMINE
     Dosage: UNK
     Route: 065

REACTIONS (8)
  - Blood pressure fluctuation [Unknown]
  - Heart rate irregular [Unknown]
  - Condition aggravated [Not Recovered/Not Resolved]
  - Blood pressure systolic increased [Unknown]
  - Gastrointestinal infection [Unknown]
  - Off label use [Unknown]
  - Gallbladder disorder [Unknown]
  - Clostridium difficile infection [Unknown]

NARRATIVE: CASE EVENT DATE: 20200805
